FAERS Safety Report 18269229 (Version 1)
Quarter: 2020Q3

REPORT INFORMATION
  Report Type: Spontaneous
  Country: DE (occurrence: DE)
  Receive Date: 20200915
  Receipt Date: 20200915
  Transmission Date: 20201103
  Serious: Yes (Other)
  Sender: FDA-Public Use
  Company Number: DE-BAYER-2020-187937

PATIENT
  Age: 44 Year
  Sex: Female
  Weight: 82 kg

DRUGS (4)
  1. KYLEENA [Suspect]
     Active Substance: LEVONORGESTREL
     Indication: DYSMENORRHOEA
  2. KYLEENA [Suspect]
     Active Substance: LEVONORGESTREL
     Indication: MENORRHAGIA
     Dosage: 17.5 ?G PER DAY CONTINUOUSLY
     Route: 015
     Dates: start: 201810, end: 20200729
  3. MIRENA [Suspect]
     Active Substance: LEVONORGESTREL
     Indication: MENORRHAGIA
     Dosage: 20 ?G PER DAY CONTINUOUSLY
     Route: 015
     Dates: start: 20030715, end: 2018
  4. MIRENA [Suspect]
     Active Substance: LEVONORGESTREL
     Indication: DYSMENORRHOEA

REACTIONS (22)
  - Headache [Recovering/Resolving]
  - Fatigue [Recovering/Resolving]
  - Disturbance in attention [Recovering/Resolving]
  - Depression [Recovering/Resolving]
  - Premenstrual syndrome [Recovering/Resolving]
  - Feeling abnormal [Recovering/Resolving]
  - Sleep disorder [Recovering/Resolving]
  - Speech disorder [Recovering/Resolving]
  - Loss of libido [Recovering/Resolving]
  - Irritability [Recovering/Resolving]
  - Mood swings [Recovering/Resolving]
  - Genital abscess [Recovering/Resolving]
  - Visual impairment [Recovering/Resolving]
  - Breast pain [Recovering/Resolving]
  - Ovulation pain [Recovering/Resolving]
  - Weight increased [Recovering/Resolving]
  - Back pain [Recovering/Resolving]
  - Iron deficiency [Recovering/Resolving]
  - Vaginal discharge [Recovering/Resolving]
  - Arthralgia [Recovering/Resolving]
  - Menorrhagia [Recovering/Resolving]
  - Skin odour abnormal [Recovering/Resolving]

NARRATIVE: CASE EVENT DATE: 20050101
